FAERS Safety Report 6030832-8 (Version None)
Quarter: 2009Q1

REPORT INFORMATION
  Report Type: 
  Country: None (occurrence: None)
  Receive Date: 20090106
  Receipt Date: 20081222
  Transmission Date: 20090719
  Serious: Yes (Hospitalization)
  Sender: FDA-Public Use
  Company Number: 2008S1022663

PATIENT
  Age: 52 Year
  Sex: Female

DRUGS (2)
  1. AMITRIPTYLINE HYDROCHLORIDE [Suspect]
  2. OLANZAPINE [Concomitant]

REACTIONS (4)
  - BRUGADA SYNDROME [None]
  - COMA [None]
  - OVERDOSE [None]
  - VENTRICULAR TACHYCARDIA [None]
